FAERS Safety Report 10673858 (Version 2)
Quarter: 2015Q1

REPORT INFORMATION
  Report Type: Spontaneous
  Country: US (occurrence: US)
  Receive Date: 20141224
  Receipt Date: 20150316
  Transmission Date: 20150720
  Serious: Yes (Hospitalization, Other)
  Sender: FDA-Public Use
  Company Number: US-JNJFOC-20141213970

PATIENT
  Age: 71 Year
  Sex: Female

DRUGS (11)
  1. BABY ASPRIN [Concomitant]
     Route: 065
  2. VITAMIN D3 [Concomitant]
     Active Substance: CHOLECALCIFEROL
     Dosage: 1000 UNIT
     Route: 048
  3. CALCIUM [Concomitant]
     Active Substance: CALCIUM
     Route: 048
  4. ACTEMRA [Suspect]
     Active Substance: TOCILIZUMAB
     Indication: RHEUMATOID ARTHRITIS
     Route: 065
     Dates: start: 201311, end: 201403
  5. TOFACITINIB CITRATE [Suspect]
     Active Substance: TOFACITINIB CITRATE
     Indication: RHEUMATOID ARTHRITIS
     Route: 048
     Dates: start: 201404
  6. NAPROXEN. [Concomitant]
     Active Substance: NAPROXEN
     Route: 065
  7. METHOTREXATE [Suspect]
     Active Substance: METHOTREXATE
     Indication: RHEUMATOID ARTHRITIS
     Route: 048
     Dates: start: 201501
  8. TOCOPHEROL [Concomitant]
     Active Substance: TOCOPHEROL
     Dosage: 400 UNITS
     Route: 048
  9. FOLIC ACID. [Concomitant]
     Active Substance: FOLIC ACID
     Route: 048
  10. REMICADE [Suspect]
     Active Substance: INFLIXIMAB
     Indication: RHEUMATOID ARTHRITIS
     Route: 042
     Dates: start: 201304, end: 201309
  11. METHOTREXATE [Suspect]
     Active Substance: METHOTREXATE
     Indication: RHEUMATOID ARTHRITIS
     Route: 048
     Dates: start: 2002

REACTIONS (6)
  - Rheumatoid arthritis [Unknown]
  - Pubis fracture [Recovering/Resolving]
  - Compression fracture [Recovering/Resolving]
  - Infusion related reaction [Unknown]
  - Breast cancer metastatic [Recovering/Resolving]
  - Pathological fracture [Recovering/Resolving]

NARRATIVE: CASE EVENT DATE: 201309
